FAERS Safety Report 8227412-2 (Version None)
Quarter: 2012Q1

REPORT INFORMATION
  Report Type: 
  Country: None (occurrence: None)
  Receive Date: 20120322
  Receipt Date: 20120301
  Transmission Date: 20120608
  Serious: Yes (Other)
  Sender: FDA-Public Use
  Company Number: AR-AMGEN-ARGSP2012004130

PATIENT
  Age: 76 Year
  Sex: Male
  Weight: 71 kg

DRUGS (2)
  1. ENBREL [Suspect]
     Indication: PSORIASIS
     Dosage: 50 MG, WEEKLY
     Route: 058
     Dates: start: 20090613
  2. VALSARTAN [Concomitant]
     Dosage: UNK

REACTIONS (3)
  - NEOPLASM PROSTATE [None]
  - SKIN CANCER [None]
  - LACRIMAL DUCT NEOPLASM [None]
